FAERS Safety Report 5830327-8 (Version None)
Quarter: 2008Q3

REPORT INFORMATION
  Report Type: 
  Country: None (occurrence: None)
  Receive Date: 20080801
  Receipt Date: 20080724
  Transmission Date: 20090109
  Serious: Yes (Hospitalization)
  Sender: FDA-Public Use
  Company Number: JP-MERCK-0807USA05416

PATIENT
  Age: 77 Year
  Sex: Female

DRUGS (9)
  1. PEPCID [Suspect]
     Route: 048
     Dates: start: 20070401
  2. DOGMATYL [Suspect]
     Route: 048
  3. MAGLAX [Concomitant]
     Route: 065
  4. DETANTOL [Concomitant]
     Route: 065
  5. TIMOPTIC [Concomitant]
     Route: 047
  6. THYRADIN [Concomitant]
     Route: 065
  7. ALINAMIN [Concomitant]
     Route: 065
  8. TRINOSIN [Concomitant]
     Route: 065
     Dates: start: 20070907
  9. CYANOCOBALAMIN [Concomitant]
     Route: 065
     Dates: start: 20070906

REACTIONS (1)
  - FACIAL PALSY [None]
